FAERS Safety Report 22317192 (Version 3)
Quarter: 2023Q2

REPORT INFORMATION
  Report Type: Report from Study
  Country: US (occurrence: US)
  Receive Date: 20230514
  Receipt Date: 20230524
  Transmission Date: 20230721
  Serious: No
  Sender: FDA-Public Use
  Company Number: US-002147023-NVSC2023US110173

PATIENT
  Sex: Male

DRUGS (1)
  1. OMNITROPE [Suspect]
     Active Substance: SOMATROPIN
     Indication: Product used for unknown indication
     Dosage: 0.7 MG, QD
     Route: 030

REACTIONS (4)
  - Accidental overdose [Unknown]
  - Wrong device used [Unknown]
  - Incorrect dose administered by device [Unknown]
  - Device leakage [Unknown]
